FAERS Safety Report 4402172-1 (Version None)
Quarter: 2004Q3

REPORT INFORMATION
  Report Type: 
  Country: None (occurrence: None)
  Receive Date: 20040716
  Receipt Date: 20040702
  Transmission Date: 20050211
  Serious: Yes (Hospitalization)
  Sender: FDA-Public Use
  Company Number: F01200401898

PATIENT
  Age: 61 Year
  Sex: Male

DRUGS (5)
  1. (OXALIPLATIN) - FORM : UNKNOWN - UNIT DOSE : UNKNOWN [Suspect]
     Indication: LUNG ADENOCARCINOMA
     Dosage: 240 MG, INTRAVENOUS NOS
     Route: 042
     Dates: start: 20040513, end: 20040513
  2. GEMZAR [Suspect]
     Indication: LUNG ADENOCARCINOMA
     Dosage: 2300 MG  , INTRAVENOUS NOS
     Route: 042
     Dates: start: 20040513, end: 20040513
  3. ERYTHROMYCINE(ERYTHROMYCIN) [Concomitant]
  4. ASPIRIN [Concomitant]
  5. PRAVASTATIN SODIUM [Concomitant]

REACTIONS (7)
  - ACUTE RESPIRATORY DISTRESS SYNDROME [None]
  - BRONCHITIS [None]
  - CHEST X-RAY ABNORMAL [None]
  - HAEMATOCRIT DECREASED [None]
  - HAEMOGLOBIN DECREASED [None]
  - HEPATOTOXICITY [None]
  - NEUROTOXICITY [None]
